FAERS Safety Report 21238758 (Version 11)
Quarter: 2025Q2

REPORT INFORMATION
  Report Type: Report from Study
  Country: DE (occurrence: DE)
  Receive Date: 20220822
  Receipt Date: 20250424
  Transmission Date: 20250717
  Serious: Yes (Hospitalization, Other)
  Sender: PFIZER
  Company Number: DE-PFM-2020-04019

PATIENT
  Age: 83 Year
  Sex: Female
  Weight: 56 kg

DRUGS (12)
  1. BRAFTOVI [Suspect]
     Active Substance: ENCORAFENIB
     Indication: Metastatic malignant melanoma
     Dosage: 450 MG, QD (1/DAY)
     Route: 048
     Dates: start: 20200109, end: 20210917
  2. BRAFTOVI [Suspect]
     Active Substance: ENCORAFENIB
     Dosage: 450 MG, QD (1/DAY)
     Route: 048
     Dates: start: 20210925, end: 20211107
  3. BRAFTOVI [Suspect]
     Active Substance: ENCORAFENIB
     Dosage: 450 MG, QD (1/DAY)
     Route: 048
     Dates: start: 20211121, end: 20211224
  4. BRAFTOVI [Suspect]
     Active Substance: ENCORAFENIB
     Dosage: 450 MG, QD (1/DAY)
     Route: 048
     Dates: start: 20211231, end: 20221213
  5. MEKTOVI [Suspect]
     Active Substance: BINIMETINIB
     Indication: Metastatic malignant melanoma
     Dosage: 45 MG, BID (2/DAY)
     Route: 048
     Dates: start: 20200109, end: 20210917
  6. MEKTOVI [Suspect]
     Active Substance: BINIMETINIB
     Dosage: 45 MG, BID (2/DAY)
     Route: 048
     Dates: start: 20210925, end: 20211107
  7. MEKTOVI [Suspect]
     Active Substance: BINIMETINIB
     Dosage: 45 MG, BID (2/DAY)
     Route: 048
     Dates: start: 20211121, end: 20211224
  8. MEKTOVI [Suspect]
     Active Substance: BINIMETINIB
     Dosage: 45 MG, BID (2/DAY)
     Route: 048
     Dates: start: 20211231, end: 20221213
  9. AMLODIPINE BESYLATE [Concomitant]
     Active Substance: AMLODIPINE BESYLATE
     Route: 065
     Dates: start: 20190916, end: 20210917
  10. AMLODIPINE BESYLATE [Concomitant]
     Active Substance: AMLODIPINE BESYLATE
     Route: 065
     Dates: start: 20191216, end: 20210917
  11. MESTINON [Concomitant]
     Active Substance: PYRIDOSTIGMINE BROMIDE
     Route: 065
     Dates: start: 19890301
  12. RAMIPRIL [Concomitant]
     Active Substance: RAMIPRIL
     Route: 065
     Dates: start: 20200108, end: 20210917

REACTIONS (18)
  - Second primary malignancy [Recovered/Resolved]
  - Basal cell carcinoma [Recovered/Resolved]
  - Urinary tract infection [Recovered/Resolved]
  - Blood creatinine increased [Unknown]
  - Amylase increased [Unknown]
  - Amylase increased [Recovered/Resolved]
  - Aspartate aminotransferase increased [Recovered/Resolved]
  - Alanine aminotransferase increased [Recovered/Resolved]
  - Lipase increased [Recovered/Resolved]
  - Lipase increased [Recovered/Resolved]
  - Pruritus [Recovered/Resolved]
  - Diarrhoea [Recovered/Resolved]
  - Dizziness [Unknown]
  - Ocular discomfort [Unknown]
  - Oral dysaesthesia [Unknown]
  - Headache [Unknown]
  - Muscle spasms [Recovered/Resolved]
  - Muscle spasms [Recovered/Resolved]

NARRATIVE: CASE EVENT DATE: 20200304
